FAERS Safety Report 5037838-6 (Version None)
Quarter: 2006Q2

REPORT INFORMATION
  Report Type: 
  Country: None (occurrence: None)
  Receive Date: 20060601
  Receipt Date: 20051221
  Transmission Date: 20061013
  Serious: Yes (Hospitalization)
  Sender: FDA-Public Use
  Company Number: 2005US001873

PATIENT
  Age: 75 Year
  Sex: Female

DRUGS (13)
  1. PROGRAF [Suspect]
     Indication: PROPHYLAXIS AGAINST TRANSPLANT REJECTION
     Dosage: SEE IMAGE
     Dates: start: 20050701
  2. ISONIAZID [Concomitant]
  3. PROTONIX [Concomitant]
  4. HYDROCORTISONE TAB [Concomitant]
  5. EPOGEN [Concomitant]
  6. NYSTATIN [Concomitant]
  7. BACTRIM [Concomitant]
  8. VALCYTE [Concomitant]
  9. PYRIDOXINE (PYRIDOXINE) [Concomitant]
  10. NPH INSULIN [Concomitant]
  11. COUMADIN [Concomitant]
  12. PHYTONADIONE [Concomitant]
  13. PERCOCET [Concomitant]

REACTIONS (8)
  - AGITATION [None]
  - AORTIC VALVE CALCIFICATION [None]
  - COMA [None]
  - FLUID OVERLOAD [None]
  - HEADACHE [None]
  - HYPOTENSION [None]
  - INSOMNIA [None]
  - TREMOR [None]
